FAERS Safety Report 4311121-6 (Version None)
Quarter: 2004Q1

REPORT INFORMATION
  Report Type: 
  Country: None (occurrence: None)
  Receive Date: 20040302
  Receipt Date: 20040302
  Transmission Date: 20041129
  Serious: Yes (Other)
  Sender: FDA-Public Use
  Company Number: None

PATIENT
  Sex: Female
  Weight: 68.0396 kg

DRUGS (1)
  1. CEFUROXIME [Suspect]
     Indication: SINUSITIS
     Dosage: 1 TAB TWICE DAILY BY MOUTH
     Dates: start: 20040207, end: 20040209

REACTIONS (2)
  - ERUCTATION [None]
  - PHARMACEUTICAL PRODUCT COMPLAINT [None]
